FAERS Safety Report 6898773-1 (Version None)
Quarter: 2010Q3

REPORT INFORMATION
  Report Type: 
  Country: None (occurrence: None)
  Receive Date: 20100802
  Receipt Date: 20071129
  Transmission Date: 20110219
  Serious: No
  Sender: FDA-Public Use
  Company Number: US-PFIZER INC-2007082841

PATIENT

DRUGS (7)
  1. LYRICA [Suspect]
     Indication: NECK PAIN
     Dates: start: 20070907
  2. LYRICA [Suspect]
     Indication: BACK PAIN
  3. LYRICA [Suspect]
     Indication: SJOGREN'S SYNDROME
  4. CELEBREX [Concomitant]
  5. ULTRAM [Concomitant]
  6. RESTORIL [Concomitant]
  7. BROMHEXINE [Concomitant]

REACTIONS (2)
  - BLISTER [None]
  - STOMATITIS [None]
